FAERS Safety Report 5415915-5 (Version None)
Quarter: 2007Q3

REPORT INFORMATION
  Report Type: 
  Country: None (occurrence: None)
  Receive Date: 20070815
  Receipt Date: 20070802
  Transmission Date: 20080115
  Serious: Yes (Other)
  Sender: FDA-Public Use
  Company Number: SE-ELI_LILLY_AND_COMPANY-SE200708001917

PATIENT
  Age: 59 Year
  Sex: Male

DRUGS (8)
  1. OLANZAPINE [Suspect]
     Indication: BIPOLAR DISORDER
     Dosage: 10 MG, DAILY (1/D)
     Dates: start: 20070516, end: 20070521
  2. PENICILLIN G [Concomitant]
     Indication: PNEUMONIA
     Dosage: 9 G, DAILY (1/D)
     Route: 042
     Dates: start: 20070511, end: 20070521
  3. MERONEM [Concomitant]
     Indication: PNEUMONIA
     Dosage: 1.5 G, DAILY (1/D)
     Route: 042
     Dates: start: 20070509, end: 20070521
  4. DIFLUCAN [Concomitant]
     Dates: start: 20070509
  5. NEXIUM [Concomitant]
  6. MOVICOL [Concomitant]
  7. BETAPRED [Concomitant]
  8. SEROQUEL [Concomitant]
     Indication: BIPOLAR DISORDER
     Dates: end: 20070515

REACTIONS (1)
  - LEUKOPENIA [None]
